FAERS Safety Report 6695073-X (Version None)
Quarter: 2010Q2

REPORT INFORMATION
  Report Type: 
  Country: None (occurrence: None)
  Receive Date: 20100421
  Receipt Date: 20100412
  Transmission Date: 20101027
  Serious: Yes (Hospitalization)
  Sender: FDA-Public Use
  Company Number: 2010SP018150

PATIENT
  Age: 72 Year
  Sex: Male

DRUGS (17)
  1. REMERON [Suspect]
     Indication: DEPRESSION
     Dosage: 30 MG;QD;PO
     Route: 048
     Dates: start: 20091001
  2. METOPROLOL TARTRATE [Suspect]
     Indication: MYOCARDIAL ISCHAEMIA
     Dosage: 50 MG;QD;PO
     Route: 048
     Dates: start: 20080311
  3. METOPROLOL TARTRATE [Suspect]
     Indication: MYOCARDIAL ISCHAEMIA
     Dosage: 50 MG;QD;PO
     Route: 048
     Dates: start: 20091001
  4. METOPROLOL TARTRATE [Suspect]
     Indication: MYOCARDIAL ISCHAEMIA
     Dosage: 50 MG;QD;PO
     Route: 048
     Dates: start: 20100301
  5. NEURONTIN [Concomitant]
  6. RIVOTRIL [Concomitant]
  7. RAMIPRIL [Concomitant]
  8. ASPIRIN [Concomitant]
  9. TOTALIP [Concomitant]
  10. NOVONORM [Concomitant]
  11. OMEPRAZEN [Concomitant]
  12. CARVASIN [Concomitant]
  13. DISIPAL [Concomitant]
  14. PLAVIX [Concomitant]
  15. LORAZEPAM [Concomitant]
  16. CLOPIXOL [Concomitant]
  17. PROZAC [Suspect]
     Indication: DEPRESSION
     Dosage: 10 MG;QD;PO
     Route: 048
     Dates: start: 20091001

REACTIONS (4)
  - DRUG INTERACTION [None]
  - EXTRAPYRAMIDAL DISORDER [None]
  - HYPOKINESIA [None]
  - SINUS BRADYCARDIA [None]
